FAERS Safety Report 15484285 (Version 1)
Quarter: 2018Q4

REPORT INFORMATION
  Report Type: Spontaneous
  Country: US (occurrence: US)
  Receive Date: 20181010
  Receipt Date: 20181010
  Transmission Date: 20190205
  Serious: No
  Sender: FDA-Public Use
  Company Number: US-NOVOPROD-618294

PATIENT
  Age: 47 Year
  Sex: Male

DRUGS (1)
  1. FIASP [Suspect]
     Active Substance: INSULIN ASPART
     Indication: TYPE 1 DIABETES MELLITUS
     Dosage: UNK
     Route: 058

REACTIONS (5)
  - Infusion site irritation [Unknown]
  - Blood glucose increased [Recovered/Resolved]
  - Wrong technique in product usage process [Unknown]
  - Infusion site mass [Unknown]
  - Infusion site erythema [Unknown]
